FAERS Safety Report 24574343 (Version 3)
Quarter: 2025Q3

REPORT INFORMATION
  Report Type: Report from Study
  Country: KR (occurrence: KR)
  Receive Date: 20241104
  Receipt Date: 20250809
  Transmission Date: 20251021
  Serious: No
  Sender: ALEXION PHARMACEUTICALS
  Company Number: KR-AstraZeneca-2024A071403

PATIENT
  Age: 80 Year
  Sex: Male
  Weight: 69 kg

DRUGS (10)
  1. DURVALUMAB [Suspect]
     Active Substance: DURVALUMAB
     Indication: Non-small cell lung cancer
     Dates: start: 20230723, end: 20230809
  2. DURVALUMAB [Suspect]
     Active Substance: DURVALUMAB
     Dates: start: 20230823, end: 20230920
  3. DURVALUMAB [Suspect]
     Active Substance: DURVALUMAB
     Dates: start: 20231004, end: 20231122
  4. DURVALUMAB [Suspect]
     Active Substance: DURVALUMAB
     Dates: start: 20231216, end: 20240103
  5. DURVALUMAB [Suspect]
     Active Substance: DURVALUMAB
     Dates: start: 20240117, end: 20240117
  6. DURVALUMAB [Suspect]
     Active Substance: DURVALUMAB
     Dates: start: 20240205, end: 20240306
  7. DURVALUMAB [Suspect]
     Active Substance: DURVALUMAB
  8. DURVALUMAB [Suspect]
     Active Substance: DURVALUMAB
  9. DURVALUMAB [Suspect]
     Active Substance: DURVALUMAB
  10. DURVALUMAB [Suspect]
     Active Substance: DURVALUMAB

REACTIONS (1)
  - Electrocardiogram abnormal [Recovered/Resolved with Sequelae]

NARRATIVE: CASE EVENT DATE: 20240103
